FAERS Safety Report 9995764 (Version 2)
Quarter: 2014Q2

REPORT INFORMATION
  Report Type: Spontaneous
  Country: CA (occurrence: CA)
  Receive Date: 20140311
  Receipt Date: 20140410
  Transmission Date: 20141212
  Serious: Yes (Other)
  Sender: FDA-Public Use
  Company Number: CA-NOVOPROD-401781

PATIENT
  Age: 55 Year
  Sex: Male
  Weight: 70 kg

DRUGS (3)
  1. VICTOZA [Suspect]
     Indication: TYPE 2 DIABETES MELLITUS
     Dosage: 0.6 MG FOR 1 WEEK
     Route: 065
  2. VICTOZA [Suspect]
     Dosage: 1.2 MG
     Route: 065
  3. VICTOZA [Suspect]
     Dosage: 1.2 MG
     Route: 065

REACTIONS (3)
  - Lipase increased [Recovered/Resolved]
  - Nausea [Unknown]
  - Vomiting [Unknown]
